FAERS Safety Report 8008975-9 (Version None)
Quarter: 2011Q4

REPORT INFORMATION
  Report Type: 
  Country: None (occurrence: None)
  Receive Date: 20111227
  Receipt Date: 20111221
  Transmission Date: 20120403
  Serious: No
  Sender: FDA-Public Use
  Company Number: US-PFIZER INC-2011311831

PATIENT
  Sex: Female

DRUGS (1)
  1. EXEMESTANE [Suspect]
     Dosage: UNK

REACTIONS (2)
  - PAIN IN EXTREMITY [None]
  - ARTHRALGIA [None]
